FAERS Safety Report 11878300 (Version 1)
Quarter: 2015Q4

REPORT INFORMATION
  Report Type: Spontaneous
  Country: US (occurrence: None)
  Receive Date: 20151229
  Receipt Date: 20151229
  Transmission Date: 20160305
  Serious: No
  Sender: FDA-Public Use
  Company Number: None

PATIENT
  Age: 37 Year
  Sex: Female

DRUGS (1)
  1. TECFIDERA [Suspect]
     Active Substance: DIMETHYL FUMARATE
     Indication: MULTIPLE SCLEROSIS
     Route: 048
     Dates: start: 20150115

REACTIONS (5)
  - Dizziness [None]
  - Headache [None]
  - Dysgeusia [None]
  - Seizure [None]
  - Memory impairment [None]

NARRATIVE: CASE EVENT DATE: 20151201
